FAERS Safety Report 8460118-3 (Version None)
Quarter: 2012Q2

REPORT INFORMATION
  Report Type: 
  Country: None (occurrence: None)
  Receive Date: 20120622
  Receipt Date: 20120619
  Transmission Date: 20120825
  Serious: Yes (Hospitalization)
  Sender: FDA-Public Use
  Company Number: DK-ELI_LILLY_AND_COMPANY-DK201110007807

PATIENT
  Sex: Male
  Weight: 75 kg

DRUGS (4)
  1. EFFIENT [Suspect]
     Dosage: 10 MG, QD
     Dates: start: 20101030
  2. ASPIRIN [Concomitant]
     Dosage: 300-500 MG, LOADING DOSE
  3. EFFIENT [Suspect]
     Indication: ACUTE CORONARY SYNDROME
     Dosage: 60 MG, LOADING DOSE
     Dates: start: 20101029, end: 20101029
  4. ASPIRIN [Concomitant]
     Dosage: 100 MG, QD

REACTIONS (2)
  - ANGINA UNSTABLE [None]
  - CORONARY ARTERY BYPASS [None]
